FAERS Safety Report 17657754 (Version 1)
Quarter: 2020Q2

REPORT INFORMATION
  Report Type: Spontaneous
  Country: US (occurrence: US)
  Receive Date: 20200411
  Receipt Date: 20200411
  Transmission Date: 20200713
  Serious: No
  Sender: FDA-Public Use
  Company Number: US-MACLEODS PHARMACEUTICALS US LTD-MAC2020026088

PATIENT

DRUGS (1)
  1. ARIPIPRAZOLE 2MG TABLET [Suspect]
     Active Substance: ARIPIPRAZOLE
     Indication: DEPRESSION
     Dosage: 0.5 DOSAGE FORM, QD
     Route: 048
     Dates: start: 201912

REACTIONS (2)
  - Off label use [Unknown]
  - Wrong technique in product usage process [Unknown]
